FAERS Safety Report 9882023 (Version 1)
Quarter: 2014Q1

REPORT INFORMATION
  Report Type: Spontaneous
  Country: US (occurrence: None)
  Receive Date: 20140205
  Receipt Date: 20140205
  Transmission Date: 20141002
  Serious: Yes (Death, Hospitalization)
  Sender: FDA-Public Use
  Company Number: IMP_07004_2014

PATIENT
  Age: 31 Year
  Sex: Male

DRUGS (2)
  1. OMEPRAZOLE [Suspect]
     Route: 048
  2. COLCHICINE [Suspect]
     Route: 048

REACTIONS (5)
  - Completed suicide [None]
  - Renal failure acute [None]
  - Pericardial effusion [None]
  - Pleural effusion [None]
  - Overdose [None]
